FAERS Safety Report 11823868 (Version 1)
Quarter: 2015Q4

REPORT INFORMATION
  Report Type: Spontaneous
  Country: DE (occurrence: DE)
  Receive Date: 20151210
  Receipt Date: 20151210
  Transmission Date: 20160305
  Serious: Yes (Other)
  Sender: FDA-Public Use
  Company Number: DE-TEVA-609918GER

PATIENT
  Age: 27 Year
  Sex: Female
  Weight: 101 kg

DRUGS (1)
  1. VALPROAT ABZ RETARDTABLETTEN 300MG [Suspect]
     Active Substance: VALPROIC ACID
     Indication: BIPOLAR DISORDER
     Dosage: 300  DAILY;
     Route: 048
     Dates: start: 20151102, end: 20151112

REACTIONS (4)
  - Product substitution issue [Unknown]
  - Pharyngeal mass [Not Recovered/Not Resolved]
  - Pharyngeal oedema [Not Recovered/Not Resolved]
  - Mouth swelling [Not Recovered/Not Resolved]

NARRATIVE: CASE EVENT DATE: 2015
